FAERS Safety Report 7537018-6 (Version None)
Quarter: 2011Q2

REPORT INFORMATION
  Report Type: 
  Country: None (occurrence: None)
  Receive Date: 20110609
  Receipt Date: 20110527
  Transmission Date: 20111010
  Serious: Yes (Hospitalization)
  Sender: FDA-Public Use
  Company Number: PHHY2011US22478

PATIENT
  Sex: Female
  Weight: 99.79 kg

DRUGS (8)
  1. LORTAB [Concomitant]
     Dosage: 10/500 MG
  2. NEURONTIN [Concomitant]
  3. FLEXERIL [Concomitant]
  4. PRILOSEC [Concomitant]
     Dosage: 20 MG
  5. RECLAST [Suspect]
     Indication: OSTEOPOROSIS POSTMENOPAUSAL
     Dosage: 5 MG
     Route: 042
     Dates: start: 20110308
  6. HYDROCHLOROTHIAZIDE [Concomitant]
  7. CYMBALTA [Concomitant]
     Dosage: 30 MG
  8. LORCET-HD [Concomitant]
     Route: 048

REACTIONS (6)
  - CHEST DISCOMFORT [None]
  - INFLUENZA LIKE ILLNESS [None]
  - PYREXIA [None]
  - CHEST PAIN [None]
  - MOUTH ULCERATION [None]
  - DYSPNOEA [None]
